FAERS Safety Report 13547780 (Version 2)
Quarter: 2017Q2

REPORT INFORMATION
  Report Type: Spontaneous
  Country: US (occurrence: US)
  Receive Date: 20170516
  Receipt Date: 20170516
  Transmission Date: 20170830
  Serious: No
  Sender: FDA-Public Use
  Company Number: US-BAUSCH-BL-2016-020361

PATIENT
  Age: 70 Year
  Sex: Female
  Weight: 81.72 kg

DRUGS (4)
  1. LATANOPROST OPHTHALMIC SOLUTION 0.005% [Suspect]
     Active Substance: LATANOPROST
     Indication: GLAUCOMA
     Route: 047
     Dates: start: 201601, end: 201602
  2. METOPROLOL. [Concomitant]
     Active Substance: METOPROLOL
     Indication: HYPERTENSION
     Route: 048
  3. LISINOPRIL. [Concomitant]
     Active Substance: LISINOPRIL
     Indication: HYPERTENSION
     Route: 048
  4. PROLIA [Concomitant]
     Active Substance: DENOSUMAB
     Indication: OSTEOPOROSIS

REACTIONS (3)
  - Burning sensation [Not Recovered/Not Resolved]
  - Wrong technique in product usage process [Unknown]
  - Product container issue [Unknown]

NARRATIVE: CASE EVENT DATE: 201601
